FAERS Safety Report 9825348 (Version 3)
Quarter: 2015Q4

REPORT INFORMATION
  Report Type: Spontaneous
  Country: US (occurrence: US)
  Receive Date: 20140117
  Receipt Date: 20151014
  Transmission Date: 20160305
  Serious: No
  Sender: FDA-Public Use
  Company Number: US-PFIZER INC-2014013780

PATIENT
  Age: 57 Year
  Sex: Female

DRUGS (4)
  1. PREDNISONE. [Suspect]
     Active Substance: PREDNISONE
     Dosage: UNK
  2. GABAPENTIN. [Suspect]
     Active Substance: GABAPENTIN
     Dosage: UNK
  3. IBUPROFEN SODIUM [Suspect]
     Active Substance: IBUPROFEN SODIUM
     Dosage: UNK
  4. IODINE-131 [Suspect]
     Active Substance: IODINE I-131
     Dosage: UNK

REACTIONS (1)
  - Drug hypersensitivity [Unknown]
